FAERS Safety Report 4672715-1 (Version None)
Quarter: 2005Q2

REPORT INFORMATION
  Report Type: 
  Country: None (occurrence: None)
  Receive Date: 20050524
  Receipt Date: 20041029
  Transmission Date: 20051028
  Serious: Yes (Other)
  Sender: FDA-Public Use
  Company Number: US-BRISTOL-MYERS SQUIBB COMPANY-12749180

PATIENT
  Age: 51 Year
  Sex: Male

DRUGS (10)
  1. BLINDED: ARIPIPRAZOLE [Suspect]
     Indication: BIPOLAR I DISORDER
     Dosage: 15 TO 30 MG
     Route: 048
     Dates: start: 20041020, end: 20041025
  2. BLINDED: LITHIUM [Suspect]
     Indication: BIPOLAR I DISORDER
     Dosage: 900 TO 1200 MG
     Route: 048
     Dates: start: 20041020, end: 20041025
  3. BLINDED: PLACEBO [Suspect]
     Indication: BIPOLAR I DISORDER
     Dosage: 300 OR 15 MG
     Route: 048
     Dates: start: 20041020, end: 20041025
  4. CLONIDINE [Suspect]
     Route: 048
     Dates: start: 19950101
  5. LIPITOR [Concomitant]
     Route: 048
     Dates: start: 19950101
  6. LOTENSIN [Concomitant]
     Route: 048
     Dates: start: 19950101
  7. SEROQUEL [Concomitant]
     Route: 048
     Dates: end: 20041016
  8. FOLIC ACID [Concomitant]
     Route: 048
  9. ASPIRIN [Concomitant]
     Route: 048
     Dates: start: 19950101
  10. LORAZEPAM [Concomitant]
     Dosage: 1MG 18-OCT-04 TO 20-OCT-04 AND ON 23-OCT-04, 2MG 25-OCT-04
     Route: 048
     Dates: start: 20041016

REACTIONS (3)
  - ENCEPHALOPATHY [None]
  - RENAL FAILURE [None]
  - THERAPEUTIC AGENT TOXICITY [None]
